FAERS Safety Report 9017498 (Version 1)
Quarter: 2013Q1

REPORT INFORMATION
  Report Type: Spontaneous
  Country: US (occurrence: US)
  Receive Date: 20130117
  Receipt Date: 20130117
  Transmission Date: 20140127
  Serious: Yes (Life-Threatening)
  Sender: FDA-Public Use
  Company Number: CHPA2012US025796

PATIENT
  Sex: Female

DRUGS (1)
  1. PREVACID 24HR 15MG [Suspect]
     Dosage: 15 MG, QD
     Route: 048
     Dates: start: 20121221

REACTIONS (5)
  - Dyspnoea [Unknown]
  - Anxiety [Unknown]
  - Hyperhidrosis [Unknown]
  - Nervousness [Unknown]
  - Wrong technique in drug usage process [Unknown]
